FAERS Safety Report 7655484 (Version 9)
Quarter: 2018Q2

REPORT INFORMATION
  Report Type: Spontaneous
  Country: BR (occurrence: BR)
  Receive Date: 20101103
  Receipt Date: 20180614
  Transmission Date: 20180711
  Serious: Yes (Other)
  Sender: FDA-Public Use
  Company Number: BR-PFIZER INC-2010021208

PATIENT
  Age: 72 Year
  Sex: Male
  Weight: 74 kg

DRUGS (8)
  1. XALACOM [Suspect]
     Active Substance: LATANOPROST\TIMOLOL MALEATE
     Indication: INTRAOCULAR PRESSURE TEST ABNORMAL
  2. CAPTOPRIL. [Suspect]
     Active Substance: CAPTOPRIL
     Indication: HYPERTENSION
     Dosage: UNK
     Dates: start: 2008, end: 2008
  3. BROMAZEPAM [Concomitant]
     Active Substance: BROMAZEPAM
     Indication: FEELING OF RELAXATION
     Dosage: 3 MG, AS NEEDED
  4. XALATAN [Suspect]
     Active Substance: LATANOPROST
     Indication: GLAUCOMA
     Dosage: 3 UG, 1X/DAY (ONE DROP IN EACH EYE)
     Route: 047
     Dates: start: 20100210, end: 2010
  5. ZOLADEX [Suspect]
     Active Substance: GOSERELIN ACETATE
     Indication: PROSTATE CANCER
     Dosage: 360 MG, UNK
     Dates: start: 200910
  6. XALACOM [Suspect]
     Active Substance: LATANOPROST\TIMOLOL MALEATE
     Indication: GLAUCOMA
     Dosage: ONE DROP IN EACH EYE
     Route: 047
     Dates: start: 2014
  7. XALATAN [Suspect]
     Active Substance: LATANOPROST
     Indication: INTRAOCULAR PRESSURE TEST ABNORMAL
  8. ALENIA /01538101/ [Suspect]
     Active Substance: BUDESONIDE\FORMOTEROL FUMARATE
     Dosage: UNK

REACTIONS (20)
  - Circumstance or information capable of leading to medication error [Unknown]
  - Product storage error [Recovered/Resolved]
  - Cough [Recovered/Resolved]
  - Vertigo [Unknown]
  - Cardiac disorder [Recovered/Resolved]
  - Benign prostatic hyperplasia [Unknown]
  - Wrong drug administered [Unknown]
  - Ocular discomfort [Unknown]
  - Asthenia [Not Recovered/Not Resolved]
  - Metastases to bone [Not Recovered/Not Resolved]
  - Product name confusion [Recovered/Resolved]
  - Spinal pain [Not Recovered/Not Resolved]
  - Drug dispensing error [Recovered/Resolved]
  - Emphysema [Not Recovered/Not Resolved]
  - Fatigue [Not Recovered/Not Resolved]
  - Influenza [Unknown]
  - Hot flush [Unknown]
  - Hyperhidrosis [Recovered/Resolved]
  - Pyrexia [Unknown]
  - Prostate cancer [Not Recovered/Not Resolved]

NARRATIVE: CASE EVENT DATE: 2009
